FAERS Safety Report 9454332 (Version 1)
Quarter: 2013Q3

REPORT INFORMATION
  Report Type: Report from Study
  Country: DE (occurrence: DE)
  Receive Date: 20130812
  Receipt Date: 20130812
  Transmission Date: 20140515
  Serious: Yes (Hospitalization)
  Sender: FDA-Public Use
  Company Number: PHHY2013DE052881

PATIENT
  Sex: Female

DRUGS (5)
  1. FTY 720 [Suspect]
     Indication: MULTIPLE SCLEROSIS
     Dosage: 0.5 MG, QD
     Route: 048
     Dates: start: 20121030, end: 20130312
  2. FTY 720 [Suspect]
     Dosage: 0.5 MG, QD
     Route: 048
     Dates: start: 20121030, end: 20130313
  3. FTY 720 [Suspect]
     Dosage: 0.5 MG, QOD
     Route: 048
     Dates: start: 20130515, end: 20130609
  4. FTY 720 [Suspect]
     Dosage: 0.5 MG, QD
     Route: 048
     Dates: start: 20130516
  5. FTY 720 [Suspect]
     Dosage: 0.5 MG, QD
     Route: 048
     Dates: start: 20130610

REACTIONS (9)
  - Multiple sclerosis relapse [Recovering/Resolving]
  - Central nervous system lesion [Not Recovered/Not Resolved]
  - Fall [Recovered/Resolved]
  - Sleep disorder [Not Recovered/Not Resolved]
  - Visual impairment [Recovered/Resolved]
  - Decreased appetite [Not Recovered/Not Resolved]
  - Dyspnoea [Not Recovered/Not Resolved]
  - Hypoaesthesia [Recovered/Resolved]
  - Gait disturbance [Recovered/Resolved]
